FAERS Safety Report 9405387 (Version 1)
Quarter: 2013Q3

REPORT INFORMATION
  Report Type: Spontaneous
  Country: GB (occurrence: None)
  Receive Date: 20130715
  Receipt Date: 20130715
  Transmission Date: 20140515
  Serious: Yes (Congenital Anomaly, Other)
  Sender: FDA-Public Use
  Company Number: GER/GER/13/0031029

PATIENT
  Age: 0 Year
  Sex: Male
  Weight: 2.71 kg

DRUGS (6)
  1. RAMIPRIL (RAMIPRIL) [Suspect]
     Indication: PRODUCT USED FOR UNKNOWN INDICATION
     Route: 064
     Dates: start: 20070215, end: 20071001
  2. MOXONIDINE [Suspect]
     Indication: PRODUCT USED FOR UNKNOWN INDICATION
     Route: 064
     Dates: start: 20070215, end: 20071001
  3. TORASEMIDE (TORASEMIDE) [Suspect]
     Indication: PRODUCT USED FOR UNKNOWN INDICATION
     Route: 064
     Dates: start: 20070215, end: 20071001
  4. AMLODIPINE (AMLODIPINE) [Suspect]
     Indication: PRODUCT USED FOR UNKNOWN INDICATION
     Route: 064
     Dates: start: 20070215, end: 20071001
  5. TORASEMIDE [Suspect]
     Indication: PRODUCT USED FOR UNKNOWN INDICATION
     Route: 064
     Dates: start: 20070215, end: 20071001
  6. METOPROLOL-CORAX (METOPROLOL TARTRATE) [Concomitant]

REACTIONS (10)
  - Atrial septal defect [None]
  - Foot deformity [None]
  - Cardiac septal hypertrophy [None]
  - Abnormal palmar/plantar creases [None]
  - Dysmorphism [None]
  - Strabismus [None]
  - Cranial sutures widening [None]
  - Maternal drugs affecting foetus [None]
  - Breech delivery [None]
  - Premature rupture of membranes [None]
